FAERS Safety Report 18946605 (Version 1)
Quarter: 2021Q1

REPORT INFORMATION
  Report Type: Spontaneous
  Country: ES (occurrence: ES)
  Receive Date: 20210226
  Receipt Date: 20210226
  Transmission Date: 20210420
  Serious: Yes (Other)
  Sender: FDA-Public Use
  Company Number: ES-JNJFOC-20210229738

PATIENT
  Age: 63 Year
  Sex: Female

DRUGS (3)
  1. ENALAPRIL [Concomitant]
     Active Substance: ENALAPRIL
  2. TADALAFIL. [Concomitant]
     Active Substance: TADALAFIL
  3. STAYVEER [Suspect]
     Active Substance: BOSENTAN
     Indication: SCLERODERMA ASSOCIATED DIGITAL ULCER
     Route: 048

REACTIONS (5)
  - Primary biliary cholangitis [Unknown]
  - Connective tissue disorder [Unknown]
  - Dysphagia [Unknown]
  - Pulmonary arterial hypertension [Unknown]
  - Transaminases increased [Unknown]
